FAERS Safety Report 4926703-8 (Version None)
Quarter: 2006Q1

REPORT INFORMATION
  Report Type: 
  Country: None (occurrence: None)
  Receive Date: 20060228
  Receipt Date: 20050526
  Transmission Date: 20060701
  Serious: No
  Sender: FDA-Public Use
  Company Number: US-GLAXOSMITHKLINE-A0560556A

PATIENT
  Age: 31 Year
  Sex: Female

DRUGS (3)
  1. LAMICTAL [Suspect]
     Indication: DEPRESSION
     Dosage: 200MG UNKNOWN
     Route: 048
  2. LEXAPRO [Suspect]
     Indication: DEPRESSION
     Dosage: 10MG UNKNOWN
     Route: 065
  3. ATIVAN [Suspect]
     Indication: SEDATION
     Dosage: 5MG UNKNOWN
     Route: 065

REACTIONS (1)
  - RASH [None]
